FAERS Safety Report 8236955-7 (Version None)
Quarter: 2012Q1

REPORT INFORMATION
  Report Type: 
  Country: None (occurrence: None)
  Receive Date: 20120327
  Receipt Date: 20120316
  Transmission Date: 20120608
  Serious: Yes (Hospitalization, Other)
  Sender: FDA-Public Use
  Company Number: PHFR2012GB001032

PATIENT
  Sex: Male
  Weight: 85 kg

DRUGS (7)
  1. BISOPROLOL FUMARATE [Concomitant]
     Indication: TACHYCARDIA
     Dosage: 2.5 MG, DAILY
     Route: 048
     Dates: start: 20120202, end: 20120228
  2. CLOZARIL [Suspect]
     Dosage: 200 MG, DAILY
     Route: 048
     Dates: start: 20120123, end: 20120202
  3. VENLAFAXINE [Concomitant]
     Dosage: 75 MG, DAILY
     Route: 048
     Dates: start: 20120228
  4. CLOZARIL [Suspect]
     Indication: SCHIZOPHRENIA
     Dosage: 200 MG, UNK
     Route: 048
     Dates: start: 20120112
  5. MULTI-VITAMINS [Concomitant]
     Indication: GENERAL PHYSICAL CONDITION
     Dosage: UNK UKN, UNK
     Route: 048
     Dates: start: 20120228
  6. OLANZAPINE [Concomitant]
     Indication: PSYCHOTIC DISORDER
     Dosage: 20 MG, DAILY
     Route: 048
     Dates: start: 20120228
  7. VENLAFAXINE [Concomitant]
     Indication: DEPRESSED MOOD
     Dosage: 150 MG, DAILY
     Route: 048
     Dates: start: 20120228

REACTIONS (10)
  - CHEST DISCOMFORT [None]
  - TACHYCARDIA [None]
  - LIVER FUNCTION TEST ABNORMAL [None]
  - BLOOD TEST ABNORMAL [None]
  - ATRIAL FIBRILLATION [None]
  - HEART RATE IRREGULAR [None]
  - HYPERCHOLESTEROLAEMIA [None]
  - ALANINE AMINOTRANSFERASE INCREASED [None]
  - BLOOD ALKALINE PHOSPHATASE INCREASED [None]
  - HYPERTRIGLYCERIDAEMIA [None]
